FAERS Safety Report 24745225 (Version 2)
Quarter: 2024Q4

REPORT INFORMATION
  Report Type: Report from Study
  Country: US (occurrence: US)
  Receive Date: 20241217
  Receipt Date: 20241231
  Transmission Date: 20250115
  Serious: Yes (Hospitalization, Other)
  Sender: ABBVIE
  Company Number: US-ABBVIE-6046649

PATIENT
  Age: 61 Year
  Sex: Female

DRUGS (3)
  1. CREON [Suspect]
     Active Substance: PANCRELIPASE AMYLASE\PANCRELIPASE LIPASE\PANCRELIPASE PROTEASE
     Indication: Product used for unknown indication
     Route: 048
     Dates: start: 2014
  2. CREON [Suspect]
     Active Substance: PANCRELIPASE AMYLASE\PANCRELIPASE LIPASE\PANCRELIPASE PROTEASE
     Indication: Product used for unknown indication
     Dosage: 1 CAPSULE PER MEAL
     Route: 048
     Dates: start: 2022
  3. CREON [Suspect]
     Active Substance: PANCRELIPASE AMYLASE\PANCRELIPASE LIPASE\PANCRELIPASE PROTEASE
     Indication: Product used for unknown indication
     Dosage: INCREASED TO TWO BY MOUTH EVERY FOUR HOURS WITH MAXIMUM 12 PER DAY, TOOK 36,000
     Route: 048
     Dates: start: 202410

REACTIONS (4)
  - Neoplasm [Not Recovered/Not Resolved]
  - Sepsis [Not Recovered/Not Resolved]
  - Thyroid neoplasm [Unknown]
  - Intestinal obstruction [Unknown]

NARRATIVE: CASE EVENT DATE: 20240101
